FAERS Safety Report 14387256 (Version 7)
Quarter: 2023Q1

REPORT INFORMATION
  Report Type: Spontaneous
  Country: US (occurrence: US)
  Receive Date: 20180115
  Receipt Date: 20230316
  Transmission Date: 20230418
  Serious: Yes (Death, Hospitalization)
  Sender: FDA-Public Use
  Company Number: US-VIFOR (INTERNATIONAL) INC.-VIT-2018-00322

PATIENT
  Age: 66 Year
  Sex: Male

DRUGS (20)
  1. VELTASSA [Suspect]
     Active Substance: PATIROMER
     Indication: Hyperkalaemia
     Dosage: EVERY OTHER DAY
     Route: 048
     Dates: start: 20160914
  2. VELTASSA [Suspect]
     Active Substance: PATIROMER
     Dosage: EVERY OTHER DAY
     Route: 048
     Dates: start: 201609
  3. ALPRAZOLAM [Concomitant]
     Active Substance: ALPRAZOLAM
  4. AMIODARONE HYDROCHLORIDE [Concomitant]
     Active Substance: AMIODARONE HYDROCHLORIDE
  5. AMLODIPINE BESYLATE [Concomitant]
     Active Substance: AMLODIPINE BESYLATE
  6. ASPIRIN [Concomitant]
     Active Substance: ASPIRIN
  7. CARVEDILOL [Concomitant]
     Active Substance: CARVEDILOL
  8. CLOPIDOGREL BISULFATE [Concomitant]
     Active Substance: CLOPIDOGREL BISULFATE
  9. CRESTOR [Concomitant]
     Active Substance: ROSUVASTATIN CALCIUM
  10. DOCUSATE CALCIUM [Concomitant]
     Active Substance: DOCUSATE CALCIUM
  11. FUROSEMIDE [Concomitant]
     Active Substance: FUROSEMIDE
  12. ISOSORBIDE MONONITRATE [Concomitant]
     Active Substance: ISOSORBIDE MONONITRATE
  13. LISINOPRIL [Concomitant]
     Active Substance: LISINOPRIL
  14. NITROSTAT [Concomitant]
     Active Substance: NITROGLYCERIN
  15. OMEGA 3 [Concomitant]
     Active Substance: CAPSAICIN
  16. PRANDIN [Concomitant]
     Active Substance: REPAGLINIDE
  17. SENNA-DOCUSATE SODIUM [Concomitant]
  18. SENSIPAR [Concomitant]
     Active Substance: CINACALCET HYDROCHLORIDE
  19. TRADJENTA [Concomitant]
     Active Substance: LINAGLIPTIN
  20. ZOLPIDEM TARTRATE [Concomitant]
     Active Substance: ZOLPIDEM TARTRATE

REACTIONS (7)
  - Death [Fatal]
  - Cardiac disorder [Not Recovered/Not Resolved]
  - Device malfunction [Unknown]
  - Device occlusion [Recovered/Resolved]
  - Anxiety [Not Recovered/Not Resolved]
  - Blood calcium increased [Unknown]
  - Off label use [Unknown]

NARRATIVE: CASE EVENT DATE: 20160914
